FAERS Safety Report 5762465-2 (Version None)
Quarter: 2008Q2

REPORT INFORMATION
  Report Type: 
  Country: None (occurrence: None)
  Receive Date: 20080527
  Receipt Date: 20071211
  Transmission Date: 20081010
  Serious: Yes (Hospitalization)
  Sender: FDA-Public Use
  Company Number: 252653

PATIENT
  Age: 65 Year
  Sex: Female

DRUGS (1)
  1. HERCEPTIN [Suspect]
     Indication: BREAST CANCER METASTATIC
     Dosage: 1/WEEK, INTRAVENOUS
     Route: 042
     Dates: start: 20070701

REACTIONS (1)
  - STAPHYLOCOCCAL INFECTION [None]
